FAERS Safety Report 15276183 (Version 1)
Quarter: 2018Q3

REPORT INFORMATION
  Report Type: Spontaneous
  Country: US (occurrence: US)
  Receive Date: 20180727
  Receipt Date: 20180727
  Transmission Date: 20181010
  Serious: Yes (Hospitalization)
  Sender: FDA-Public Use
  Company Number: None

PATIENT
  Age: 28 Year
  Sex: Female

DRUGS (8)
  1. QUETIAPINE. [Concomitant]
     Active Substance: QUETIAPINE
  2. ACETAMINOPHEN. [Concomitant]
     Active Substance: ACETAMINOPHEN
  3. FUROSEMIDE. [Concomitant]
     Active Substance: FUROSEMIDE
  4. ENOXAPARIN [Concomitant]
     Active Substance: ENOXAPARIN
  5. ONDANSETRON [Concomitant]
     Active Substance: ONDANSETRON
  6. CASPOFUNGIN [Concomitant]
     Active Substance: CASPOFUNGIN
  7. DAPTOMYCIN. [Suspect]
     Active Substance: DAPTOMYCIN
     Indication: ABSCESS
     Route: 042
     Dates: start: 20180202, end: 20180409
  8. PAROXETINE. [Concomitant]
     Active Substance: PAROXETINE

REACTIONS (4)
  - Pain in extremity [None]
  - Blood creatine phosphokinase increased [None]
  - Deep vein thrombosis [None]
  - Oedema peripheral [None]

NARRATIVE: CASE EVENT DATE: 20180409
